FAERS Safety Report 8391985-X (Version None)
Quarter: 2012Q2

REPORT INFORMATION
  Report Type: 
  Country: None (occurrence: None)
  Receive Date: 20120529
  Receipt Date: 20120521
  Transmission Date: 20120825
  Serious: Yes (Other)
  Sender: FDA-Public Use
  Company Number: JP-JNJFOC-20120413989

PATIENT
  Sex: Male
  Weight: 55 kg

DRUGS (18)
  1. FENTANYL-100 [Suspect]
     Indication: PAIN
     Route: 062
     Dates: start: 20111215
  2. MEXITIL [Concomitant]
     Indication: PAIN
     Dosage: 16 LU
     Route: 048
     Dates: start: 20110620
  3. GABAPENTIN [Concomitant]
     Route: 048
     Dates: start: 20100730, end: 20101031
  4. VOLTAREN [Concomitant]
     Dosage: 16 LU
     Route: 048
     Dates: start: 20101022
  5. MEPIVACAINE HCL [Concomitant]
     Indication: PAIN
     Route: 065
     Dates: start: 20100730
  6. MOTILIUM [Concomitant]
     Indication: PROPHYLAXIS
     Dosage: 16 LU
     Route: 048
     Dates: start: 20111014
  7. AMITRIPTYLINE HCL [Concomitant]
     Route: 048
     Dates: start: 20100813, end: 20100826
  8. NEUROTROPIN [Concomitant]
     Indication: PAIN
     Dosage: 16 LU
     Route: 048
     Dates: start: 20100730
  9. LYRICA [Concomitant]
     Indication: PAIN
     Dosage: 16 LU
     Route: 048
     Dates: start: 20110620
  10. FENTANYL-100 [Suspect]
     Route: 062
     Dates: start: 20111205, end: 20111215
  11. LYRICA [Concomitant]
     Dosage: 16 LU
     Route: 048
     Dates: start: 20101101, end: 20110619
  12. FENTANYL-100 [Suspect]
     Route: 062
     Dates: start: 20111125, end: 20111129
  13. FENTANYL-100 [Suspect]
     Route: 062
     Dates: start: 20111111, end: 20111123
  14. FENTANYL-100 [Suspect]
     Route: 062
     Dates: start: 20111123, end: 20111124
  15. FENTANYL-100 [Suspect]
     Route: 062
     Dates: start: 20111130, end: 20111205
  16. AMITRIPTYLINE HCL [Concomitant]
     Indication: PAIN
     Route: 048
     Dates: start: 20101121
  17. AMITRIPTYLINE HCL [Concomitant]
     Route: 048
     Dates: start: 20100827, end: 20111120
  18. UNKNOWN MEDICATION [Concomitant]
     Indication: PAIN
     Route: 065
     Dates: start: 20100730

REACTIONS (4)
  - MENTAL DISORDER [None]
  - WRONG TECHNIQUE IN DRUG USAGE PROCESS [None]
  - DRUG INTOLERANCE [None]
  - NAUSEA [None]
